FAERS Safety Report 4263631-8 (Version None)
Quarter: 2004Q1

REPORT INFORMATION
  Report Type: 
  Country: None (occurrence: None)
  Receive Date: 20040102
  Receipt Date: 20031223
  Transmission Date: 20041129
  Serious: No
  Sender: FDA-Public Use
  Company Number: 03H-048-0245616-00

PATIENT
  Sex: 0

DRUGS (7)
  1. LIDOCAINE HYDROCHLORIDE INJ [Suspect]
     Indication: INDUCTION OF ANAESTHESIA
     Dosage: 1.5 MG/KG, INTRAVENOUS
     Route: 042
  2. THIOPENTAL [Suspect]
     Indication: INDUCTION OF ANAESTHESIA
     Dosage: 2.5%, 5-7 MG/KG, INTRAVENOUS
     Route: 042
  3. DIAZEPAM [Concomitant]
  4. ATROPINE [Concomitant]
  5. FENTANYL [Concomitant]
  6. OXYGEN [Concomitant]
  7. HALOTHANE [Concomitant]

REACTIONS (1)
  - LARYNGOSPASM [None]
